FAERS Safety Report 6028998-9 (Version None)
Quarter: 2008Q4

REPORT INFORMATION
  Report Type: 
  Country: None (occurrence: None)
  Receive Date: 20081222
  Receipt Date: 20081104
  Transmission Date: 20090506
  Serious: No
  Sender: FDA-Public Use
  Company Number: ALL1-2008-03221

PATIENT
  Age: 11 Year
  Sex: Male
  Weight: 30.4 kg

DRUGS (4)
  1. VYVANSE [Suspect]
     Indication: ATTENTION DEFICIT/HYPERACTIVITY DISORDER
     Dosage: 30 MG, 1X/DAY:QD, ORAL; 40 MG, 1X/DAY:QD, ORAL
     Route: 048
     Dates: start: 20080401, end: 20080801
  2. VYVANSE [Suspect]
     Indication: ATTENTION DEFICIT/HYPERACTIVITY DISORDER
     Dosage: 30 MG, 1X/DAY:QD, ORAL; 40 MG, 1X/DAY:QD, ORAL
     Route: 048
     Dates: start: 20080901
  3. ZOLOFT	/01011401/ (SERTRALINE) [Concomitant]
  4. MELATONIN (MELATONIN) [Concomitant]

REACTIONS (3)
  - ANXIETY [None]
  - DISTURBANCE IN ATTENTION [None]
  - WEIGHT DECREASED [None]
